FAERS Safety Report 8184143-5 (Version None)
Quarter: 2012Q1

REPORT INFORMATION
  Report Type: 
  Country: None (occurrence: None)
  Receive Date: 20120305
  Receipt Date: 20120229
  Transmission Date: 20120608
  Serious: Yes (Death, Other)
  Sender: FDA-Public Use
  Company Number: PE-PFIZER INC-2012021859

PATIENT
  Age: 26 Year
  Sex: Male

DRUGS (2)
  1. ZYVOX [Suspect]
     Indication: INFECTION
     Dosage: 600 MG, UNK
     Route: 042
     Dates: start: 20100901
  2. IMIPENEM [Concomitant]
     Dosage: UNK
     Route: 042
     Dates: start: 20100901

REACTIONS (2)
  - COMA [None]
  - BRAIN NEOPLASM [None]
